FAERS Safety Report 9175035 (Version 1)
Quarter: 2013Q1

REPORT INFORMATION
  Report Type: Spontaneous
  Country: JP (occurrence: None)
  Receive Date: 20130315
  Receipt Date: 20130315
  Transmission Date: 20140127
  Serious: Yes (Life-Threatening)
  Sender: FDA-Public Use
  Company Number: SYM-2013-01538

PATIENT
  Age: 75 Year
  Sex: Male

DRUGS (18)
  1. FLUOROURACIL (FLUOROURACIL) (INJECTION) (FLUOROURACIL) [Suspect]
     Indication: COLON CANCER
     Dosage: 600 MG, ONCE, INTRAVENOUS BOLUS
     Dates: start: 20110404, end: 20110404
  2. OXALIPLATIN (OXALIPLATIN) (SOLUTION FOR INFUSION) (OXALIPLATIN) [Suspect]
     Indication: COLON CANCER
     Dosage: 120 MG, DAILY, INTRAVENOUS DRIP
     Dates: start: 20110404, end: 20110404
  3. LEVOLEUCOVORIN CALCIUM [Suspect]
     Indication: COLON CANCER
     Dosage: 300 MG, DAILY, INTRAVENOUS DRIP
     Dates: start: 20110404, end: 20110404
  4. AVASTIN (BEVACIZUMAB) (INJECTION) ((BEVACIZUMAB) [Suspect]
     Indication: COLON CANCER
     Dosage: 370 MG, DAILY, INTRAVENOUS DRIP
     Route: 041
     Dates: start: 20111129, end: 20111129
  5. LOXONIN (LOXOPROFEN SODIUM (UNKNOWN) (LOXOPROFEN SODIUM) [Concomitant]
  6. NEXIUM (ESOMEPRAZOLE ) (UNKNOWN) (ESOMEPRAZOLE) [Concomitant]
  7. NORVASC (AMLODIPINE BESILAGE) (UNKNOWN) (AMLODIPINE BESILATE) [Concomitant]
  8. MYSLEE (ZOLPIDEM TARTRATE) (UNKNOWN) (ZOLIDEM TARTRATE) [Concomitant]
  9. GOSHAJINKIGAN (HERBAL EXTRACT NOS (UNKNOWN) (HERBAL EXTRACT NOS) [Concomitant]
  10. KYTRIL (GRANISETRON HYDROCHLORIDE ) (UNKNOWN) (GRANISETRON HYDROCHLORIDE) [Concomitant]
  11. DECADRON (DEXAMETHASONE) (UNKNOWN) (DEXAMETHASONE) [Concomitant]
  12. VALSARTAN (VALSARTAN ) (UNKNOWN) (VALSARTAN) [Concomitant]
  13. HORIZON (DIAZEPAM) (UNKNOWN) (DIAZEPAM) [Concomitant]
  14. MUCODYNE (CARBOCISTEINE) (UNKNOWN) (CARBOCISTEINE) [Concomitant]
  15. SUNRYTHM (PILSICAINIDE HYDROCHLORIDE) (UNKNOWN) (PILSICAINIDE HYDROCHLORIDE) [Concomitant]
  16. GRANISETRON (GRANISETRON ) (UNKNOWN) (GRANISETRON) [Concomitant]
  17. DEXAMETHASONE SODIUM PHOSPHATE (DEXAMETHASONE SODIUM PHOSPHATE) (UNKNOWN) (DEXAMETHASONE SODIUM PHOSPHATE) [Concomitant]
  18. MAGLAX (MAGNESIUM OXIDE ) (UNKNOWN) (MAGNESIUM OXIDE) [Concomitant]

REACTIONS (2)
  - Malaise [None]
  - Hepatitis B [None]
